FAERS Safety Report 24037667 (Version 2)
Quarter: 2024Q3

REPORT INFORMATION
  Report Type: Spontaneous
  Country: AU (occurrence: AU)
  Receive Date: 20240702
  Receipt Date: 20240713
  Transmission Date: 20241016
  Serious: Yes (Life-Threatening, Hospitalization)
  Sender: TEVA
  Company Number: AU-TEVA-VS-3215050

PATIENT
  Age: 25 Year
  Sex: Female

DRUGS (2)
  1. TESTOSTERONE [Suspect]
     Active Substance: TESTOSTERONE
     Indication: Transgender hormonal therapy
     Route: 061
  2. DULOXETINE [Concomitant]
     Active Substance: DULOXETINE
     Indication: Product used for unknown indication

REACTIONS (3)
  - Bipolar disorder [Recovering/Resolving]
  - Mania [Recovering/Resolving]
  - Psychotic disorder [Recovering/Resolving]
